FAERS Safety Report 25984215 (Version 1)
Quarter: 2025Q4

REPORT INFORMATION
  Report Type: Spontaneous
  Country: US (occurrence: None)
  Receive Date: 20251031
  Receipt Date: 20251031
  Transmission Date: 20260117
  Serious: Yes (Hospitalization)
  Sender: FDA-CTU
  Company Number: None

PATIENT
  Sex: Female

DRUGS (1)
  1. OCTREOTIDE [Suspect]
     Active Substance: OCTREOTIDE
     Indication: Short-bowel syndrome
     Dosage: OTHER STRENGTH : 100MCG/ML SDV 1 ML;?FREQUENCY : DAILY;?
     Route: 058
     Dates: start: 20230310

REACTIONS (1)
  - Hospitalisation [None]
